FAERS Safety Report 9559964 (Version 2)
Quarter: 2013Q3

REPORT INFORMATION
  Report Type: Spontaneous
  Country: US (occurrence: US)
  Receive Date: 20130927
  Receipt Date: 20130927
  Transmission Date: 20140515
  Serious: No
  Sender: FDA-Public Use
  Company Number: US-PFIZER INC-2013264258

PATIENT
  Age: 75 Year
  Sex: Female
  Weight: 67.57 kg

DRUGS (2)
  1. GABAPENTIN [Suspect]
     Indication: FIBROMYALGIA
     Dosage: 300 MG, 3X/DAY
     Route: 048
  2. TIZANIDINE [Concomitant]
     Dosage: 4 MG, UNK

REACTIONS (5)
  - Off label use [Unknown]
  - Neuropathy peripheral [Unknown]
  - Pain in extremity [Unknown]
  - Fall [Unknown]
  - Dizziness [Unknown]
